FAERS Safety Report 18932787 (Version 4)
Quarter: 2021Q2

REPORT INFORMATION
  Report Type: Report from Study
  Country: None (occurrence: US)
  Receive Date: 20210224
  Receipt Date: 20210627
  Transmission Date: 20210717
  Serious: Yes (Hospitalization, Other)
  Sender: FDA-Public Use
  Company Number: US-ABBVIE-21K-163-3783519-00

PATIENT
  Age: 64 Year
  Sex: Female

DRUGS (3)
  1. VENCLEXTA [Suspect]
     Active Substance: VENETOCLAX
     Route: 048
     Dates: start: 2021
  2. VENCLEXTA [Suspect]
     Active Substance: VENETOCLAX
     Indication: ACUTE MYELOID LEUKAEMIA
     Route: 048
     Dates: start: 202102, end: 2021
  3. CRESEMBA [Interacting]
     Active Substance: ISAVUCONAZONIUM SULFATE
     Indication: PRODUCT USED FOR UNKNOWN INDICATION
     Route: 065

REACTIONS (17)
  - Hypotension [Unknown]
  - Cancer fatigue [Unknown]
  - Hypertension [Unknown]
  - Decreased appetite [Unknown]
  - Hypoaesthesia [Unknown]
  - Stem cell transplant [Unknown]
  - Oropharyngeal pain [Recovering/Resolving]
  - Transfusion [Unknown]
  - Platelet transfusion [Unknown]
  - Bone marrow transplant [Unknown]
  - Hospitalisation [Unknown]
  - Impaired self-care [Unknown]
  - Gait disturbance [Unknown]
  - Drug interaction [Unknown]
  - Peripheral swelling [Unknown]
  - Diarrhoea [Unknown]
  - Peripheral swelling [Unknown]

NARRATIVE: CASE EVENT DATE: 202104
